FAERS Safety Report 7861601-1 (Version None)
Quarter: 2011Q4

REPORT INFORMATION
  Report Type: 
  Country: None (occurrence: None)
  Receive Date: 20111027
  Receipt Date: 20111017
  Transmission Date: 20120403
  Serious: Yes (Death)
  Sender: FDA-Public Use
  Company Number: US-BAXTER-2011BH032750

PATIENT
  Age: 55 Year
  Sex: Male
  Weight: 86 kg

DRUGS (3)
  1. CYCLOPHOSPHAMIDE [Suspect]
     Indication: MULTIPLE MYELOMA
     Route: 042
     Dates: start: 20110515, end: 20110519
  2. CISPLATIN [Suspect]
     Indication: MULTIPLE MYELOMA
     Route: 048
     Dates: start: 20110515, end: 20110519
  3. ETOPOSIDE [Suspect]
     Indication: MULTIPLE MYELOMA
     Route: 042
     Dates: start: 20110515, end: 20110519

REACTIONS (1)
  - MULTIPLE MYELOMA [None]
